FAERS Safety Report 7753245-7 (Version None)
Quarter: 2011Q3

REPORT INFORMATION
  Report Type: 
  Country: None (occurrence: None)
  Receive Date: 20110915
  Receipt Date: 20110531
  Transmission Date: 20111222
  Serious: No
  Sender: FDA-Public Use
  Company Number: US-GLAXOSMITHKLINE-A0929658A

PATIENT
  Sex: Female

DRUGS (1)
  1. NICORETTE (MINT) [Suspect]
     Indication: EX-TOBACCO USER

REACTIONS (4)
  - RHINORRHOEA [None]
  - NASAL CONGESTION [None]
  - DRUG ADMINISTRATION ERROR [None]
  - THROAT IRRITATION [None]
